FAERS Safety Report 26163484 (Version 1)
Quarter: 2025Q4

REPORT INFORMATION
  Report Type: Spontaneous
  Country: CH (occurrence: CH)
  Receive Date: 20251216
  Receipt Date: 20251216
  Transmission Date: 20260118
  Serious: Yes (Other)
  Sender: ADMA BIOLOGICS
  Company Number: CH-ADMA BIOLOGICS INC.-CH-2025ADM000399

PATIENT
  Sex: Male

DRUGS (1)
  1. ASCENIV [Suspect]
     Active Substance: HUMAN IMMUNOGLOBULIN G
     Indication: Prophylaxis
     Dosage: 2 GRAM PER KILOGRAM, EVERY 4 WEEKS

REACTIONS (2)
  - Neonatal respiratory distress [Unknown]
  - Foetal exposure during pregnancy [Unknown]
